FAERS Safety Report 16016075 (Version 1)
Quarter: 2019Q1

REPORT INFORMATION
  Report Type: Spontaneous
  Country: AU (occurrence: AU)
  Receive Date: 20190228
  Receipt Date: 20190228
  Transmission Date: 20190418
  Serious: Yes (Other)
  Sender: FDA-Public Use
  Company Number: AU-TEVA-2019-AU-1018440

PATIENT
  Age: 32 Year
  Sex: Male

DRUGS (5)
  1. OLANZAPINE. [Suspect]
     Active Substance: OLANZAPINE
     Route: 065
  2. CLOZARIL [Suspect]
     Active Substance: CLOZAPINE
     Route: 065
  3. ATORVASTATIN [Suspect]
     Active Substance: ATORVASTATIN
     Route: 065
  4. ARIPIPRAZOLE. [Suspect]
     Active Substance: ARIPIPRAZOLE
     Dosage: DOSAGE UNKNOWN
     Route: 065
  5. AMISULPRIDE [Suspect]
     Active Substance: AMISULPRIDE
     Route: 065

REACTIONS (23)
  - Cardiomyopathy [Unknown]
  - Hypercholesterolaemia [Unknown]
  - Product dose omission [Unknown]
  - Mitral valve incompetence [Unknown]
  - Sinus tachycardia [Unknown]
  - Aggression [Unknown]
  - Ventricular hypokinesia [Unknown]
  - Pulmonary valve incompetence [Unknown]
  - Diastolic dysfunction [Unknown]
  - Blood creatine decreased [Unknown]
  - Aspartate aminotransferase increased [Unknown]
  - Drug ineffective [Unknown]
  - Somnolence [Unknown]
  - Urinary incontinence [Unknown]
  - Condition aggravated [Unknown]
  - Schizophrenia [Unknown]
  - Alanine aminotransferase increased [Unknown]
  - Blood creatine phosphokinase increased [Unknown]
  - Blood pressure increased [Unknown]
  - Hyperlipidaemia [Unknown]
  - Treatment noncompliance [Unknown]
  - Ejection fraction decreased [Unknown]
  - C-reactive protein increased [Unknown]
